FAERS Safety Report 6940930-X (Version None)
Quarter: 2010Q3

REPORT INFORMATION
  Report Type: 
  Country: None (occurrence: None)
  Receive Date: 20100825
  Receipt Date: 20100817
  Transmission Date: 20110219
  Serious: Yes (Hospitalization)
  Sender: FDA-Public Use
  Company Number: A0791333A

PATIENT
  Age: 59 Year
  Sex: Female
  Weight: 87.7 kg

DRUGS (9)
  1. AVANDIA [Suspect]
     Dosage: 8U PER DAY
     Route: 065
     Dates: start: 20000201, end: 20080401
  2. AMARYL [Concomitant]
  3. SYNTHROID [Concomitant]
  4. MAGNESIUM OXIDE [Concomitant]
  5. GLUCOPHAGE [Concomitant]
  6. SINGULAIR [Concomitant]
  7. ALTACE [Concomitant]
  8. ALBUTEROL [Concomitant]
  9. SEREVENT [Concomitant]

REACTIONS (8)
  - AMNESIA [None]
  - APHASIA [None]
  - CARDIAC FAILURE CONGESTIVE [None]
  - CEREBROVASCULAR ACCIDENT [None]
  - COORDINATION ABNORMAL [None]
  - CORONARY ARTERY DISEASE [None]
  - FATIGUE [None]
  - VISUAL ACUITY REDUCED [None]
